FAERS Safety Report 23573281 (Version 1)
Quarter: 2024Q1

REPORT INFORMATION
  Report Type: Spontaneous
  Country: PE (occurrence: PE)
  Receive Date: 20240228
  Receipt Date: 20240228
  Transmission Date: 20240410
  Serious: Yes (Death, Other)
  Sender: FDA-Public Use
  Company Number: PE-CHEPLA-2024002408

PATIENT
  Age: 8 Year
  Sex: Male

DRUGS (8)
  1. GANCICLOVIR [Suspect]
     Active Substance: GANCICLOVIR
     Indication: Cytomegalovirus infection reactivation
     Route: 042
  2. GANCICLOVIR [Suspect]
     Active Substance: GANCICLOVIR
     Indication: Antiviral prophylaxis
     Route: 042
  3. VALGANCICLOVIR [Suspect]
     Active Substance: VALGANCICLOVIR
     Indication: Cytomegalovirus infection reactivation
     Dosage: ON DAY +275, THE PATIENT STARTED TREATMENT WITH ORAL VALGANCICLOVIR (15-18 MG/KG/DAY) FOR 9 DAYS.
     Route: 048
  4. FOSCARNET [Suspect]
     Active Substance: FOSCARNET
     Indication: Cytomegalovirus infection reactivation
  5. CIDOFOVIR [Suspect]
     Active Substance: CIDOFOVIR
     Indication: Cytomegalovirus infection reactivation
  6. CYTARABINE [Concomitant]
     Active Substance: CYTARABINE
     Dosage: 30 MG EVERY 24 H
     Route: 042
  7. CYTARABINE [Concomitant]
     Active Substance: CYTARABINE
     Dosage: 30 MG EVERY 24 H
     Route: 037
  8. MORPHINE [Concomitant]
     Active Substance: MORPHINE
     Indication: Pain

REACTIONS (9)
  - Drug ineffective [Not Recovered/Not Resolved]
  - Leukaemia recurrent [Not Recovered/Not Resolved]
  - Pneumonia [Recovered/Resolved]
  - Adenovirus infection [Unknown]
  - BK virus infection [Unknown]
  - Anaemia [Not Recovered/Not Resolved]
  - Thrombocytopenia [Not Recovered/Not Resolved]
  - Hypovolaemic shock [Fatal]
  - Intestinal haemorrhage [Fatal]
